FAERS Safety Report 6844941-4 (Version None)
Quarter: 2010Q3

REPORT INFORMATION
  Report Type: 
  Country: None (occurrence: None)
  Receive Date: 20100715
  Receipt Date: 20100712
  Transmission Date: 20110219
  Serious: Yes (Hospitalization)
  Sender: FDA-Public Use
  Company Number: FR-AMGEN-KDC422183

PATIENT
  Sex: Female
  Weight: 54 kg

DRUGS (16)
  1. VECTIBIX [Suspect]
     Indication: BREAST CANCER
     Dates: start: 20100303
  2. DOCETAXEL [Suspect]
     Dates: start: 20100526
  3. DOXYCYCLINE [Concomitant]
     Dates: start: 20100304
  4. SOLUPRED [Concomitant]
     Dates: start: 20100304
  5. FLUCONAZOLE [Concomitant]
     Dates: start: 20100304
  6. MOTILIUM [Concomitant]
     Dates: start: 20100310
  7. EPREX [Concomitant]
     Dates: start: 20100324
  8. OMEPRAZOLE [Concomitant]
     Dates: start: 20100304
  9. AUGMENTIN '125' [Concomitant]
     Dates: start: 20100602
  10. CLAMOXYL [Concomitant]
     Dates: start: 20100602
  11. FLAGYL [Concomitant]
     Dates: start: 20100602
  12. ROCEPHIN [Concomitant]
     Dates: start: 20100602
  13. WARFARIN SODIUM [Concomitant]
     Dates: start: 20100308
  14. CETYLPYRIDINIUM CHLORIDE [Concomitant]
     Dates: start: 20100304
  15. CHLOROBUTANOL/POLYVINYL ALCOHOL [Concomitant]
     Dates: start: 20100304
  16. BICARBONATE [Concomitant]
     Dates: start: 20100304

REACTIONS (1)
  - FEBRILE BONE MARROW APLASIA [None]
